FAERS Safety Report 7971361-1 (Version None)
Quarter: 2011Q4

REPORT INFORMATION
  Report Type: 
  Country: None (occurrence: None)
  Receive Date: 20111212
  Receipt Date: 20111208
  Transmission Date: 20120403
  Serious: Yes (Other)
  Sender: FDA-Public Use
  Company Number: US-PFIZER INC-2010073083

PATIENT
  Sex: Male
  Weight: 72.5 kg

DRUGS (4)
  1. LIPITOR [Suspect]
     Indication: BLOOD CHOLESTEROL INCREASED
     Dosage: 10 MG, DAILY
     Route: 048
     Dates: start: 20090901
  2. MULTI-VITAMINS [Concomitant]
     Dosage: UNK
  3. SUDAFED 12 HOUR [Concomitant]
     Indication: SINUS CONGESTION
     Dosage: UNK
  4. LIPITOR [Suspect]
     Indication: BLOOD TRIGLYCERIDES INCREASED
     Dosage: 5 MG, 1X/DAY

REACTIONS (3)
  - ALBUMIN GLOBULIN RATIO INCREASED [None]
  - WEIGHT DECREASED [None]
  - BLOOD UREA NITROGEN/CREATININE RATIO INCREASED [None]
